FAERS Safety Report 16953163 (Version 1)
Quarter: 2019Q4

REPORT INFORMATION
  Report Type: Report from Study
  Country: BR (occurrence: BR)
  Receive Date: 20191023
  Receipt Date: 20191023
  Transmission Date: 20200122
  Serious: Yes (Hospitalization)
  Sender: FDA-Public Use
  Company Number: BR-JNJFOC-20190723651

PATIENT
  Age: 24 Year
  Sex: Female
  Weight: 49 kg

DRUGS (3)
  1. METHOTREXATE. [Concomitant]
     Active Substance: METHOTREXATE
     Route: 065
  2. SULFASALAZINE. [Concomitant]
     Active Substance: SULFASALAZINE
     Route: 065
  3. STELARA [Suspect]
     Active Substance: USTEKINUMAB
     Indication: CROHN^S DISEASE
     Route: 058
     Dates: start: 201902

REACTIONS (3)
  - Colectomy total [Recovered/Resolved]
  - Product dose omission [Unknown]
  - Ileostomy [Recovered/Resolved]

NARRATIVE: CASE EVENT DATE: 2019
